FAERS Safety Report 20887389 (Version 1)
Quarter: 2022Q2

REPORT INFORMATION
  Report Type: Report from Study
  Country: CN (occurrence: CN)
  Receive Date: 20220528
  Receipt Date: 20220528
  Transmission Date: 20220720
  Serious: Yes (Hospitalization, Other)
  Sender: FDA-Public Use
  Company Number: CN-NOVARTISPH-NVSC2022CN123010

PATIENT
  Age: 64 Year
  Sex: Female
  Weight: 52 kg

DRUGS (5)
  1. TYKERB [Suspect]
     Active Substance: LAPATINIB DITOSYLATE
     Indication: Breast cancer metastatic
     Dosage: 1250 MG, (QD, EVERY 3 WEEKS AS A CYCLE)
     Route: 048
     Dates: start: 20220425, end: 20220506
  2. CAPECITABINE [Suspect]
     Active Substance: CAPECITABINE
     Indication: Breast cancer metastatic
     Dosage: 2500 MG (1000 MG IN THE MORNING AND 1500 MG IN THE EVENING) (D1 TO D14, EVERY 3 WEEKS AS A CYCLE)
     Route: 048
     Dates: start: 20220425, end: 20220506
  3. CAPECITABINE [Suspect]
     Active Substance: CAPECITABINE
     Dosage: UNK (2 PILL IN THE MORNING AND 2 PILLS IN THE EVENING)
     Route: 065
     Dates: start: 20220513
  4. POTASSIUM CHLORIDE [Concomitant]
     Active Substance: POTASSIUM CHLORIDE
     Indication: Mineral supplementation
     Dosage: 3.0 G, QD
     Route: 042
     Dates: start: 20220509
  5. POTASSIUM CHLORIDE [Concomitant]
     Active Substance: POTASSIUM CHLORIDE
     Dosage: 3.0 G, QD
     Route: 042
     Dates: start: 20220510, end: 20220512

REACTIONS (6)
  - Hypokalaemia [Recovered/Resolved with Sequelae]
  - Renal failure [Recovering/Resolving]
  - Diarrhoea [Recovered/Resolved]
  - Decreased appetite [Recovered/Resolved]
  - Nausea [Recovered/Resolved]
  - Blood creatinine increased [Unknown]

NARRATIVE: CASE EVENT DATE: 20220426
